FAERS Safety Report 8205987 (Version 3)
Quarter: 2012Q4

REPORT INFORMATION
  Report Type: Report from Study
  Country: JP (occurrence: JP)
  Receive Date: 20111028
  Receipt Date: 20121109
  Transmission Date: 20130627
  Serious: Yes (Death, Hospitalization, Other)
  Sender: FDA-Public Use
  Company Number: JP-CELGENEUS-087-50794-11072522

PATIENT
  Age: 66 Year
  Sex: Female
  Weight: 49 kg

DRUGS (19)
  1. VIDAZA [Suspect]
     Indication: MYELODYSPLASTIC SYNDROME
     Dosage: 75 milligram/sq. meter
     Route: 065
     Dates: start: 20110502, end: 20110509
  2. VIDAZA [Suspect]
     Dosage: 75 milligram/sq. meter
     Route: 065
     Dates: start: 20110530, end: 20110607
  3. VIDAZA [Suspect]
     Dosage: 75 milligram/sq. meter
     Route: 065
     Dates: start: 20110627, end: 20110705
  4. ANTIBIOTICS [Concomitant]
     Indication: DRUG USE FOR UNKNOWN INDICATION
     Route: 065
     Dates: start: 20110501
  5. ALOSENN [Concomitant]
     Indication: DRUG USE FOR UNKNOWN INDICATION
     Dosage: 1 Gram
     Route: 048
  6. VALTREX [Concomitant]
     Indication: DRUG USE FOR UNKNOWN INDICATION
     Dosage: 500 Milligram
     Route: 048
  7. CRAVIT [Concomitant]
     Indication: DRUG USE FOR UNKNOWN INDICATION
     Dosage: 300 Milligram
     Route: 048
  8. KATIV-N [Concomitant]
     Indication: DRUG USE FOR UNKNOWN INDICATION
     Dosage: 20 Milligram
     Route: 048
  9. FOLIAMIN [Concomitant]
     Indication: DRUG USE FOR UNKNOWN INDICATION
     Dosage: 15 Milligram
     Route: 048
  10. MAGLAX [Concomitant]
     Indication: DRUG USE FOR UNKNOWN INDICATION
     Dosage: 330 Milligram
     Route: 048
  11. PYRINAZIN [Concomitant]
     Indication: DRUG USE FOR UNKNOWN INDICATION
     Dosage: 1.5 Gram
     Route: 048
  12. LAXOBERON [Concomitant]
     Indication: DRUG USE FOR UNKNOWN INDICATION
     Dosage: ^proper dose^
     Route: 048
  13. LASIX [Concomitant]
     Indication: DRUG USE FOR UNKNOWN INDICATION
     Dosage: 10 Milligram
     Route: 041
     Dates: start: 20110427
  14. MEYLON [Concomitant]
     Indication: DRUG USE FOR UNKNOWN INDICATION
     Dosage: 20 milliliter
     Route: 041
     Dates: start: 20110427, end: 20110501
  15. MEROPEN [Concomitant]
     Indication: DRUG USE FOR UNKNOWN INDICATION
     Dosage: 2 Gram
     Route: 041
     Dates: start: 20110502
  16. VANCOMYCIN [Concomitant]
     Indication: DRUG USE FOR UNKNOWN INDICATION
     Dosage: 1 Gram
     Route: 041
     Dates: start: 20110502
  17. POLARAMINE [Concomitant]
     Indication: DRUG USE FOR UNKNOWN INDICATION
     Dosage: 5 Milligram
     Route: 041
     Dates: start: 20110516, end: 20110516
  18. NEO-MINOPHAGEN C [Concomitant]
     Indication: DRUG USE FOR UNKNOWN INDICATION
     Dosage: 20 milliliter
     Route: 041
     Dates: start: 20110516, end: 20110516
  19. DILFUCAN [Concomitant]
     Indication: DRUG USE FOR UNKNOWN INDICATION
     Dosage: 200 Milligram
     Route: 048

REACTIONS (4)
  - Bronchopulmonary aspergillosis [Fatal]
  - Sepsis [Not Recovered/Not Resolved]
  - Platelet count decreased [Not Recovered/Not Resolved]
  - Anaemia [Recovering/Resolving]
